FAERS Safety Report 9057538 (Version 1)
Quarter: 2013Q1

REPORT INFORMATION
  Report Type: Spontaneous
  Country: US (occurrence: None)
  Receive Date: 20130204
  Receipt Date: 20130204
  Transmission Date: 20140127
  Serious: Yes (Disabling)
  Sender: FDA-Public Use
  Company Number: None

PATIENT
  Age: 47 Year
  Sex: Female
  Weight: 87.09 kg

DRUGS (1)
  1. RITUXAN [Suspect]
     Indication: RHEUMATOID ARTHRITIS
     Dosage: 2 TIMES EVERY 4 MO
     Route: 041

REACTIONS (8)
  - Immune system disorder [None]
  - Cytomegalovirus infection [None]
  - Hepatitis [None]
  - Pneumonia [None]
  - Encephalitis [None]
  - Asthenia [None]
  - Malaise [None]
  - Impaired work ability [None]
